FAERS Safety Report 16793764 (Version 1)
Quarter: 2019Q3

REPORT INFORMATION
  Report Type: Spontaneous
  Country: US (occurrence: US)
  Receive Date: 20190911
  Receipt Date: 20190911
  Transmission Date: 20191005
  Serious: No
  Sender: FDA-Public Use
  Company Number: US-CIPLA LTD.-2019US04539

PATIENT

DRUGS (3)
  1. ALENDRONATE [Suspect]
     Active Substance: ALENDRONATE SODIUM
     Indication: OSTEOPOROSIS
     Dosage: 70 MILLIGRAM, ONCE A WEEK
     Route: 048
     Dates: start: 2019
  2. VITAMIN D                          /00107901/ [Concomitant]
     Active Substance: ERGOCALCIFEROL
     Indication: PRODUCT USED FOR UNKNOWN INDICATION
     Dosage: 150 MILLIGRAM TABLET, ONCE A WEEK NIGHT
     Route: 065
  3. LEVOTHYROXIN [Concomitant]
     Active Substance: LEVOTHYROXINE
     Indication: THYROID DISORDER
     Dosage: 75 MILLIGRAM
     Route: 065

REACTIONS (2)
  - Inappropriate schedule of product administration [Unknown]
  - Wrong technique in product usage process [Unknown]

NARRATIVE: CASE EVENT DATE: 20190607
